FAERS Safety Report 18305994 (Version 1)
Quarter: 2020Q3

REPORT INFORMATION
  Report Type: Spontaneous
  Country: US (occurrence: US)
  Receive Date: 20200923
  Receipt Date: 20200923
  Transmission Date: 20201103
  Serious: Yes (Hospitalization)
  Sender: FDA-Public Use
  Company Number: None

PATIENT
  Age: 88 Year
  Sex: Male
  Weight: 68.81 kg

DRUGS (1)
  1. WARFARIN (WARFARIN NA (EXELAN) 5MG TAB) [Suspect]
     Active Substance: WARFARIN SODIUM
     Indication: ATRIAL FIBRILLATION
     Dosage: ?          OTHER DOSE:N/A;?

REACTIONS (5)
  - Melaena [None]
  - Anaemia [None]
  - Tachycardia [None]
  - International normalised ratio abnormal [None]
  - Hypertension [None]

NARRATIVE: CASE EVENT DATE: 20180724
